FAERS Safety Report 6413001-9 (Version None)
Quarter: 2009Q4

REPORT INFORMATION
  Report Type: 
  Country: None (occurrence: None)
  Receive Date: 20091026
  Receipt Date: 20091021
  Transmission Date: 20100525
  Serious: Yes (Life-Threatening, Hospitalization, Disabling, Other)
  Sender: FDA-Public Use
  Company Number: US-ASTRAZENECA-2007UW02306

PATIENT
  Age: 12858 Day
  Sex: Male
  Weight: 87.1 kg

DRUGS (25)
  1. SEROQUEL [Suspect]
     Indication: SLEEP DISORDER
     Dosage: 25-50 MG DAILY
     Route: 048
     Dates: start: 20020625, end: 20041201
  2. SEROQUEL [Suspect]
     Dosage: 25-100MG
     Route: 048
     Dates: start: 20020802
  3. CARDIZEM [Concomitant]
     Dosage: 180-360MG
     Route: 048
     Dates: start: 20050930
  4. ATENOLOL [Concomitant]
     Dosage: 50-100 MG
     Route: 048
     Dates: start: 20050930
  5. PLAVIX [Concomitant]
     Dosage: 25-75 MG
     Route: 048
     Dates: start: 20060418
  6. REGULAR INSULIN [Concomitant]
     Dosage: SLIDING SCALE
     Route: 058
     Dates: start: 20060601
  7. INSULIN NOVOLOG 70/30 [Concomitant]
     Dosage: 10-22 UNITS THREE TIMES A DAY (SLIDING SCALE)
     Route: 058
     Dates: start: 20051128
  8. LASIX [Concomitant]
     Dosage: 40-80MG
     Route: 048
     Dates: start: 20060606
  9. HYDROCHLOROTHIAZIDE [Concomitant]
     Route: 048
     Dates: start: 20060918
  10. NEXIUM [Concomitant]
     Dates: start: 20070718
  11. PHENERGAN HCL [Concomitant]
     Dates: start: 20070718
  12. COMPAZINE [Concomitant]
     Dates: start: 20070718
  13. KLONOPIN [Concomitant]
     Dates: start: 20070718
  14. PERCOCET [Concomitant]
     Dates: start: 20070718
  15. VALIUM [Concomitant]
     Dates: start: 20070718
  16. ELAVIL [Concomitant]
     Dates: start: 20070718
  17. PHOSLO [Concomitant]
     Dates: start: 20070718
  18. EPOGEN INJECTION [Concomitant]
     Dosage: WEEKLY
     Dates: start: 20070718
  19. HECTOROL [Concomitant]
     Dates: start: 20070718
  20. HEPARIN [Concomitant]
     Dates: start: 20070718
  21. MINOXIDIL [Concomitant]
     Dates: start: 20070718
  22. DIOVAN [Concomitant]
     Dates: start: 20070718
  23. CLONIDINE [Concomitant]
     Dates: start: 20070718
  24. LISINOPRIL [Concomitant]
     Dates: start: 20070718
  25. INSULIN [Concomitant]
     Dates: start: 20070718

REACTIONS (49)
  - ACCELERATED HYPERTENSION [None]
  - ACUTE RESPIRATORY DISTRESS SYNDROME [None]
  - ACUTE RESPIRATORY FAILURE [None]
  - ANGINA PECTORIS [None]
  - APHASIA [None]
  - BLINDNESS [None]
  - BLOOD PRESSURE INADEQUATELY CONTROLLED [None]
  - BRONCHITIS [None]
  - CARDIAC MURMUR [None]
  - CATARACT [None]
  - CEREBROVASCULAR ACCIDENT [None]
  - CEREBROVASCULAR DISORDER [None]
  - CHEST PAIN [None]
  - DEPRESSION [None]
  - DIABETIC COMPLICATION [None]
  - DIABETIC EYE DISEASE [None]
  - DIABETIC NEPHROPATHY [None]
  - DIABETIC NEUROPATHY [None]
  - DIABETIC RETINOPATHY [None]
  - DIZZINESS [None]
  - FALL [None]
  - HEADACHE [None]
  - HEMIPARESIS [None]
  - HYPERTENSION [None]
  - HYPERTENSIVE ENCEPHALOPATHY [None]
  - INTRAOCULAR LENS IMPLANT [None]
  - MAJOR DEPRESSION [None]
  - MALIGNANT HYPERTENSION [None]
  - METABOLIC ACIDOSIS [None]
  - MUSCULOSKELETAL CHEST PAIN [None]
  - NEPHRITIS [None]
  - NEPHROLITHIASIS [None]
  - PAIN [None]
  - POST-TRAUMATIC PAIN [None]
  - PRESYNCOPE [None]
  - PROCEDURAL DIZZINESS [None]
  - RENAL DISORDER [None]
  - RENAL FAILURE [None]
  - RENAL FAILURE CHRONIC [None]
  - RESPIRATORY FAILURE [None]
  - RETINAL DETACHMENT [None]
  - RETINAL ISCHAEMIA [None]
  - RETINAL VEIN OCCLUSION [None]
  - SHOCK [None]
  - STRABISMUS [None]
  - SYNCOPE [None]
  - TRANSIENT ISCHAEMIC ATTACK [None]
  - TYPE 1 DIABETES MELLITUS [None]
  - VITREOUS HAEMORRHAGE [None]
